FAERS Safety Report 22325858 (Version 1)
Quarter: 2023Q2

REPORT INFORMATION
  Report Type: Spontaneous
  Country: US (occurrence: US)
  Receive Date: 20230516
  Receipt Date: 20230516
  Transmission Date: 20230721
  Serious: Yes (Other)
  Sender: FDA-Public Use
  Company Number: US-BRISTOL-MYERS SQUIBB COMPANY-2023-068562

PATIENT
  Age: 70 Year
  Sex: Female
  Weight: 79.37 kg

DRUGS (1)
  1. POMALYST [Suspect]
     Active Substance: POMALIDOMIDE
     Indication: Plasma cell myeloma
     Dosage: FREQ: 21 DAYS 7 DAYS OFF
     Route: 048
     Dates: start: 20220928

REACTIONS (1)
  - Malignant neoplasm progression [Unknown]
